FAERS Safety Report 25391897 (Version 1)
Quarter: 2025Q2

REPORT INFORMATION
  Report Type: Spontaneous
  Country: CN (occurrence: CN)
  Receive Date: 20250603
  Receipt Date: 20250603
  Transmission Date: 20250716
  Serious: Yes (Hospitalization, Other)
  Sender: PFIZER
  Company Number: CN-PFIZER INC-PV202500064937

PATIENT
  Age: 64 Year
  Sex: Female
  Weight: 47.5 kg

DRUGS (5)
  1. CYTARABINE [Suspect]
     Active Substance: CYTARABINE
     Indication: Neoplasm malignant
     Dosage: 0.014 G, 2X/DAY
     Route: 041
     Dates: start: 20250207, end: 20250218
  2. ACLARUBICIN HYDROCHLORIDE [Suspect]
     Active Substance: ACLARUBICIN HYDROCHLORIDE
     Indication: Neoplasm malignant
     Dosage: 0.014 G, 2X/DAY
     Route: 041
     Dates: start: 20250207, end: 20250208
  3. VENCLEXTA [Suspect]
     Active Substance: VENETOCLAX
     Indication: Neoplasm malignant
     Dosage: 200 MG, 1X/DAY
     Route: 048
     Dates: start: 20250207, end: 20250211
  4. GRANULOCYTE COLONY-STIMULATING FACTOR NOS [Concomitant]
     Active Substance: GRANULOCYTE COLONY-STIMULATING FACTOR NOS
     Indication: Neoplasm malignant
     Dates: start: 20250206
  5. GILTERITINIB [Concomitant]
     Active Substance: GILTERITINIB
     Indication: Myelosuppression
     Dosage: ONE TABLET ONCE DAILY
     Route: 048
     Dates: start: 20250305, end: 20250521

REACTIONS (2)
  - Myelosuppression [Not Recovered/Not Resolved]
  - Petechiae [Unknown]

NARRATIVE: CASE EVENT DATE: 20250520
